FAERS Safety Report 6558489-8 (Version None)
Quarter: 2010Q1

REPORT INFORMATION
  Report Type: 
  Country: None (occurrence: None)
  Receive Date: 20100129
  Receipt Date: 20100122
  Transmission Date: 20100710
  Serious: Yes (Life-Threatening, Hospitalization)
  Sender: FDA-Public Use
  Company Number: GXKR2010FR00914

PATIENT
  Age: 73 Year
  Sex: Female
  Weight: 58 kg

DRUGS (11)
  1. BROMAZEPAM (NGX) [Suspect]
     Dosage: TOTAL MAXIMUM UP TO 180 MG, ONCE/SINGLE
     Route: 048
  2. ZOLPIDEM (NGX) [Suspect]
     Dosage: 10 MG/DAY
     Route: 065
  3. ZOLPIDEM (NGX) [Suspect]
     Dosage: TOTAL MAXIMUM UP TO 140 MG, ONCE/SINGLE
     Route: 048
  4. FLUINDIONE [Concomitant]
     Route: 065
  5. AMIODARONE [Concomitant]
     Route: 065
  6. DIPYRIDAMOLE [Concomitant]
     Route: 065
  7. AMLODIPINE [Concomitant]
     Route: 065
  8. RAMIPRIL [Concomitant]
     Route: 065
  9. GLICLAZIDE [Concomitant]
     Route: 065
  10. ATORVASTATIN [Concomitant]
     Route: 065
  11. BETAHISTINE [Concomitant]
     Route: 065

REACTIONS (12)
  - AREFLEXIA [None]
  - BRADYPNOEA [None]
  - COMA [None]
  - CONFUSIONAL STATE [None]
  - DRUG DETOXIFICATION [None]
  - ENDOTRACHEAL INTUBATION [None]
  - ENTERAL NUTRITION [None]
  - HYPOTONIA [None]
  - INTENTIONAL OVERDOSE [None]
  - LOSS OF CONSCIOUSNESS [None]
  - PNEUMONIA ASPIRATION [None]
  - SINUS BRADYCARDIA [None]
